FAERS Safety Report 17100964 (Version 2)
Quarter: 2020Q2

REPORT INFORMATION
  Report Type: Spontaneous
  Country: US (occurrence: US)
  Receive Date: 20191202
  Receipt Date: 20200415
  Transmission Date: 20200713
  Serious: No
  Sender: FDA-Public Use
  Company Number: US-SA-2019SA330875

PATIENT
  Age: 21 Year
  Sex: Female

DRUGS (2)
  1. DUPIXENT [Suspect]
     Active Substance: DUPILUMAB
     Indication: DERMATITIS ATOPIC
     Dosage: UNK UNK, 1X
     Dates: start: 2019
  2. DUPIXENT [Suspect]
     Active Substance: DUPILUMAB
     Indication: PSORIASIS
     Dosage: 300 MG, QOW
     Route: 058
     Dates: start: 20191030

REACTIONS (7)
  - Injection site pruritus [Unknown]
  - Dry eye [Unknown]
  - Injection site erythema [Unknown]
  - Dry skin [Unknown]
  - Product use in unapproved indication [Unknown]
  - Injection site swelling [Unknown]
  - Eczema [Unknown]

NARRATIVE: CASE EVENT DATE: 2019
